FAERS Safety Report 4877358-2 (Version None)
Quarter: 2006Q1

REPORT INFORMATION
  Report Type: 
  Country: None (occurrence: None)
  Receive Date: 20060109
  Receipt Date: 20051227
  Transmission Date: 20060701
  Serious: Yes (Hospitalization)
  Sender: FDA-Public Use
  Company Number: 2005173639

PATIENT
  Age: 55 Year
  Sex: Female

DRUGS (6)
  1. ALPRAZOLAM [Suspect]
     Indication: PANIC REACTION
     Dosage: 3 MG (1 MG, 3 IN 1 D), ORAL
     Route: 048
  2. ATENOLOL [Concomitant]
  3. NOVALGINA (METAMIZOLE SODIUM) [Concomitant]
  4. BETOPTIC [Concomitant]
  5. ATACAND [Concomitant]
  6. CLONAZEPAM [Concomitant]

REACTIONS (1)
  - BLOOD PRESSURE INCREASED [None]
